FAERS Safety Report 6138737-9 (Version None)
Quarter: 2009Q1

REPORT INFORMATION
  Report Type: 
  Country: None (occurrence: None)
  Receive Date: 20090331
  Receipt Date: 20090325
  Transmission Date: 20090719
  Serious: Yes (Hospitalization)
  Sender: FDA-Public Use
  Company Number: US-GILEAD-2009-0020349

PATIENT
  Sex: Male
  Weight: 148.91 kg

DRUGS (9)
  1. LETAIRIS [Suspect]
     Indication: PULMONARY ARTERIAL HYPERTENSION
     Route: 048
     Dates: start: 20081230
  2. VIAGRA [Concomitant]
     Indication: PULMONARY ARTERIAL HYPERTENSION
  3. ASPIRIN [Concomitant]
  4. CHLORPHENTERMINE 65MG TAB [Concomitant]
  5. FLUTICASONE PROPIONATE [Concomitant]
  6. PRILOSEC [Concomitant]
  7. CODEINE PHOSPHATE [Concomitant]
  8. AVELOX [Concomitant]
     Indication: PNEUMONIA
  9. SUCLOR [Concomitant]
     Indication: COUGH

REACTIONS (2)
  - PNEUMONIA [None]
  - PYREXIA [None]
